FAERS Safety Report 4355710-1 (Version None)
Quarter: 2004Q2

REPORT INFORMATION
  Report Type: 
  Country: None (occurrence: None)
  Receive Date: 20040510
  Receipt Date: 20040510
  Transmission Date: 20050107
  Serious: No
  Sender: FDA-Public Use
  Company Number: None

PATIENT

DRUGS (1)
  1. TAXOL [Suspect]
     Indication: CORONARY ARTERY DISEASE

REACTIONS (1)
  - MEDICAL DEVICE COMPLICATION [None]
